FAERS Safety Report 25149158 (Version 3)
Quarter: 2025Q2

REPORT INFORMATION
  Report Type: Report from Study
  Country: US (occurrence: US)
  Receive Date: 20250402
  Receipt Date: 20250425
  Transmission Date: 20250717
  Serious: Yes (Hospitalization)
  Sender: ABBVIE
  Company Number: US-ABBVIE-6207402

PATIENT
  Age: 66 Year
  Sex: Male
  Weight: 59.87 kg

DRUGS (3)
  1. DUOPA [Suspect]
     Active Substance: CARBIDOPA\LEVODOPA
     Indication: Parkinson^s disease
     Route: 050
     Dates: start: 20240408, end: 202503
  2. DUOPA [Suspect]
     Active Substance: CARBIDOPA\LEVODOPA
     Route: 050
  3. MIRALAX [Concomitant]
     Active Substance: POLYETHYLENE GLYCOL 3350
     Indication: Defaecation disorder

REACTIONS (10)
  - Blood pressure systolic decreased [Recovered/Resolved]
  - Heart rate abnormal [Recovered/Resolved]
  - Dizziness [Recovered/Resolved]
  - Platelet count decreased [Recovered/Resolved]
  - Gait inability [Recovering/Resolving]
  - Speech disorder [Unknown]
  - Red blood cell count decreased [Recovered/Resolved]
  - Coordination abnormal [Unknown]
  - Insomnia [Recovered/Resolved]
  - Soliloquy [Unknown]

NARRATIVE: CASE EVENT DATE: 20250317
